FAERS Safety Report 21962148 (Version 1)
Quarter: 2023Q1

REPORT INFORMATION
  Report Type: Spontaneous
  Country: CH (occurrence: CH)
  Receive Date: 20230207
  Receipt Date: 20230207
  Transmission Date: 20230418
  Serious: Yes (Disabling, Other)
  Sender: FDA-Public Use
  Company Number: CH-SM-2023-10113

PATIENT
  Age: 39 Year
  Sex: Female
  Weight: 54 kg

DRUGS (6)
  1. VENLAFAXINE HYDROCHLORIDE [Suspect]
     Active Substance: VENLAFAXINE HYDROCHLORIDE
     Indication: Depression
     Dosage: 300 MILLIGRAM, QD (2008-2012 300 MG/DAY, SINCE THEN 75 MG/DAY)
     Route: 048
     Dates: start: 2008, end: 2012
  2. VENLAFAXINE HYDROCHLORIDE [Suspect]
     Active Substance: VENLAFAXINE HYDROCHLORIDE
     Dosage: 75 MILLIGRAM, QD (2008-2012 300 MG/DAY, SINCE THEN 75 MG/DAY)
     Route: 048
     Dates: start: 2012
  3. PROMAZINE HYDROCHLORIDE [Suspect]
     Active Substance: PROMAZINE HYDROCHLORIDE
     Indication: Product used for unknown indication
     Dosage: 50 MILLIGRAM, QD (25-50 MG/DAY FOR 10 YEARS)
     Route: 048
     Dates: start: 2013, end: 20230106
  4. CONCERTA [Suspect]
     Active Substance: METHYLPHENIDATE HYDROCHLORIDE
     Indication: Attention deficit hyperactivity disorder
     Dosage: 54 MILLIGRAM, QD
     Route: 048
     Dates: start: 2013
  5. ESOMEPRAZOLE [Suspect]
     Active Substance: ESOMEPRAZOLE
     Indication: Gastrooesophageal reflux disease
     Dosage: 40 MILLIGRAM, QD (FOR A LONG TIME, EXACT DURATION UNKNOWN)
     Route: 048
  6. ZOLPIDEM [Concomitant]
     Active Substance: ZOLPIDEM TARTRATE
     Indication: Insomnia
     Dosage: 5 MILLIGRAM, PRN (5-10 MG, DURATION AND FREQUENCY OF INTAKE UNKNOWN; AS NECESSARY))
     Route: 048

REACTIONS (1)
  - Choroid melanoma [Not Recovered/Not Resolved]

NARRATIVE: CASE EVENT DATE: 20220328
